FAERS Safety Report 11083438 (Version 1)
Quarter: 2015Q2

REPORT INFORMATION
  Report Type: Report from Study
  Country: US (occurrence: US)
  Receive Date: 20150501
  Receipt Date: 20150501
  Transmission Date: 20150821
  Serious: No
  Sender: FDA-Public Use
  Company Number: US-ABBVIE-14P-163-1274986-00

PATIENT
  Age: 38 Year
  Sex: Male

DRUGS (7)
  1. ATORVASTATIN [Concomitant]
     Active Substance: ATORVASTATIN
     Indication: PRODUCT USED FOR UNKNOWN INDICATION
  2. SERTRALINE [Concomitant]
     Active Substance: SERTRALINE HYDROCHLORIDE
     Indication: PRODUCT USED FOR UNKNOWN INDICATION
  3. ALPRAZOLAM. [Concomitant]
     Active Substance: ALPRAZOLAM
     Indication: PRODUCT USED FOR UNKNOWN INDICATION
  4. AMLODIPINE BENAZEPRIL [Concomitant]
     Active Substance: AMLODIPINE BESYLATE\BENAZEPRIL HYDROCHLORIDE
     Indication: PRODUCT USED FOR UNKNOWN INDICATION
     Dosage: 10-20
  5. ANDROGEL [Suspect]
     Active Substance: TESTOSTERONE
     Indication: ASTHENIA
     Dosage: APPLY 2 PUMPS TO THE SKIN EVEY DAY
     Dates: start: 20140813
  6. TRIAMTEREEN/HYDROCHLOORTHIAZIDE [Concomitant]
     Indication: PRODUCT USED FOR UNKNOWN INDICATION
     Dosage: 37.5/25 MG
  7. OXYCODONE [Concomitant]
     Active Substance: OXYCODONE
     Indication: PRODUCT USED FOR UNKNOWN INDICATION
     Dosage: 7.5-325MG

REACTIONS (2)
  - Depressed mood [Unknown]
  - Insomnia [Unknown]

NARRATIVE: CASE EVENT DATE: 20140820
